FAERS Safety Report 4419991-8 (Version None)
Quarter: 2004Q3

REPORT INFORMATION
  Report Type: 
  Country: None (occurrence: None)
  Receive Date: 20040809
  Receipt Date: 20040319
  Transmission Date: 20050211
  Serious: No
  Sender: FDA-Public Use
  Company Number: US-GLAXOSMITHKLINE-A0503511A

PATIENT
  Age: 72 Year
  Sex: Female

DRUGS (4)
  1. PAXIL [Suspect]
     Indication: DEPRESSION
     Dosage: 10MG PER DAY
     Route: 048
  2. UNKNOWN MEDICATION [Concomitant]
     Route: 055
  3. K-DUR 10 [Concomitant]
  4. PROVENTIL [Concomitant]

REACTIONS (1)
  - WEIGHT DECREASED [None]
